FAERS Safety Report 4816264-6 (Version None)
Quarter: 2005Q4

REPORT INFORMATION
  Report Type: 
  Country: None (occurrence: None)
  Receive Date: 20051026
  Receipt Date: 20051010
  Transmission Date: 20060501
  Serious: Yes (Hospitalization)
  Sender: FDA-Public Use
  Company Number: DSA_27254_2005

PATIENT
  Age: 79 Year
  Sex: Female

DRUGS (21)
  1. TRAMADOL [Suspect]
     Indication: POSTOPERATIVE ANALGESIA
     Dosage: VAR Q6HR
  2. TRAMADOL [Suspect]
     Indication: POSTOPERATIVE ANALGESIA
     Dosage: DF
  3. INDAPAMIDE [Concomitant]
  4. ATENOLOL [Concomitant]
  5. VALSARTAN [Concomitant]
  6. VALSARTAN [Concomitant]
  7. ACETAMINOPHEN [Concomitant]
  8. TIAPROFENIC ACID [Concomitant]
  9. BUPIVACAINE [Concomitant]
  10. BUPIVACAINE [Concomitant]
  11. DIAMORPHINE [Concomitant]
  12. DIAMORPHINE [Concomitant]
  13. FENTANYL [Concomitant]
  14. FENTANYL [Concomitant]
  15. PROPOFOL [Concomitant]
  16. PROPOFOL [Concomitant]
  17. ONDANSETRON [Concomitant]
  18. DEXAMETHASONE [Concomitant]
  19. CYCLIZINE [Concomitant]
  20. SODIUM LACTATE (HARTMANN'S) [Concomitant]
  21. NORMAL SALINE [Concomitant]

REACTIONS (9)
  - ABDOMINAL PAIN [None]
  - CHEST PAIN [None]
  - CONFUSIONAL STATE [None]
  - DEHYDRATION [None]
  - FEELING ABNORMAL [None]
  - GRAND MAL CONVULSION [None]
  - INAPPROPRIATE ANTIDIURETIC HORMONE SECRETION [None]
  - NAUSEA [None]
  - VOMITING [None]
